FAERS Safety Report 18781617 (Version 1)
Quarter: 2021Q1

REPORT INFORMATION
  Report Type: Report from Study
  Country: IT (occurrence: IT)
  Receive Date: 20210125
  Receipt Date: 20210125
  Transmission Date: 20210419
  Serious: Yes (Death)
  Sender: FDA-Public Use
  Company Number: IT-PFIZER INC-2021043294

PATIENT
  Age: 73 Year
  Sex: Male
  Weight: 70 kg

DRUGS (5)
  1. VANCOMYCIN [Suspect]
     Active Substance: VANCOMYCIN
     Indication: INFECTION
     Dosage: 2 G, 1X/DAY
     Route: 040
     Dates: start: 20201226, end: 20201229
  2. FLUCONAZOLE. [Suspect]
     Active Substance: FLUCONAZOLE
     Indication: FUNGAL INFECTION
     Dosage: 400 MG, 1X/DAY
     Route: 042
     Dates: start: 20201227, end: 20201229
  3. DEXMEDETOMIDINE. [Suspect]
     Active Substance: DEXMEDETOMIDINE
     Indication: SEDATION
     Dosage: 16 UG/KG, 1X/DAY
     Route: 041
     Dates: start: 20201130, end: 20201225
  4. MEROPENEM. [Suspect]
     Active Substance: MEROPENEM
     Indication: INFECTION
     Dosage: 3 G, 1X/DAY
     Route: 042
     Dates: start: 20201224, end: 20201229
  5. QUETIAPINE FUMARATE. [Suspect]
     Active Substance: QUETIAPINE FUMARATE
     Dosage: 50 MG, 1X/DAY
     Route: 048
     Dates: start: 20201224, end: 20201229

REACTIONS (3)
  - Epidermolysis bullosa [Fatal]
  - Macule [Fatal]
  - Erythema [Fatal]

NARRATIVE: CASE EVENT DATE: 20201229
